FAERS Safety Report 13398156 (Version 1)
Quarter: 2017Q2

REPORT INFORMATION
  Report Type: Spontaneous
  Country: IT (occurrence: IT)
  Receive Date: 20170403
  Receipt Date: 20170403
  Transmission Date: 20170830
  Serious: Yes (Other)
  Sender: FDA-Public Use
  Company Number: IT-ABBVIE-17P-083-1930774-00

PATIENT
  Age: 65 Year
  Sex: Female

DRUGS (2)
  1. VALPROIC ACID. [Suspect]
     Active Substance: VALPROIC ACID
     Indication: ANAPLASTIC THYROID CANCER
     Route: 065
  2. CISPLATIN. [Suspect]
     Active Substance: CISPLATIN
     Indication: ANAPLASTIC THYROID CANCER
     Dosage: 50 MILLIGRAM(S)/SQUARE METER; WEEKLY
     Route: 065

REACTIONS (4)
  - Metastases to lung [Unknown]
  - Anaplastic thyroid cancer [Unknown]
  - Malignant neoplasm progression [Unknown]
  - Off label use [Unknown]
